FAERS Safety Report 17064723 (Version 1)
Quarter: 2019Q4

REPORT INFORMATION
  Report Type: Spontaneous
  Country: NO (occurrence: NO)
  Receive Date: 20191122
  Receipt Date: 20191122
  Transmission Date: 20200122
  Serious: Yes (Hospitalization, Other)
  Sender: FDA-Public Use
  Company Number: NO-009507513-1911NOR006867

PATIENT
  Sex: Male

DRUGS (3)
  1. CALCIGRAN FORTE [Concomitant]
     Active Substance: CALCIUM CARBONATE\CHOLECALCIFEROL
     Indication: OSTEOPENIA
     Dosage: A12AX - CALCIUM, COMBINED WITH VITAMIN D AND/OR OTHER DRUGS (CHOLECALCIFEROL: 800 MG, CALCIUM CARBON
     Route: 048
     Dates: start: 2017
  2. FOSAMAX [Suspect]
     Active Substance: ALENDRONATE SODIUM
     Indication: OSTEOPOROSIS
     Dosage: M05BA04 - ALENDRONIC ACID
     Route: 048
     Dates: start: 2017
  3. LEMTRADA [Suspect]
     Active Substance: ALEMTUZUMAB
     Indication: MULTIPLE SCLEROSIS
     Dosage: ROUND ONE MARCH 2016: 12 MG/DAY FOR 5 CONSECUTIVE DAYS. ROUND TWO MARCH 2017: 12MG/DAY FOR 3 CONSECU
     Route: 042
     Dates: start: 20160307, end: 20170311

REACTIONS (2)
  - Postoperative wound infection [Recovered/Resolved]
  - Osteonecrosis [Recovering/Resolving]

NARRATIVE: CASE EVENT DATE: 201802
